FAERS Safety Report 12367269 (Version 1)
Quarter: 2016Q2

REPORT INFORMATION
  Report Type: Spontaneous
  Country: US (occurrence: US)
  Receive Date: 20160513
  Receipt Date: 20160513
  Transmission Date: 20160815
  Serious: No
  Sender: FDA-Public Use
  Company Number: US-PERRIGO-15US006051

PATIENT
  Sex: Male
  Weight: 65.76 kg

DRUGS (2)
  1. CLINDAMYCIN PHOSPHATE. [Suspect]
     Active Substance: CLINDAMYCIN PHOSPHATE
     Indication: FOLLICULITIS
     Dosage: SMALL AMOUNT DAILY
     Route: 061
     Dates: start: 2012, end: 20150610
  2. CLINDAMYCIN PHOSPHATE. [Suspect]
     Active Substance: CLINDAMYCIN PHOSPHATE
     Indication: ACNE

REACTIONS (2)
  - Off label use [Recovered/Resolved]
  - Therapeutic response unexpected [Recovered/Resolved]

NARRATIVE: CASE EVENT DATE: 2012
